FAERS Safety Report 17206319 (Version 1)
Quarter: 2019Q4

REPORT INFORMATION
  Report Type: Spontaneous
  Country: US (occurrence: US)
  Receive Date: 20191205
  Receipt Date: 20191205
  Transmission Date: 20200122
  Serious: No
  Sender: FDA-Public Use
  Company Number: None

PATIENT
  Age: 64 Year
  Sex: Female

DRUGS (1)
  1. STELARA [Suspect]
     Active Substance: USTEKINUMAB
     Route: 058
     Dates: start: 2017

REACTIONS (3)
  - Treatment noncompliance [None]
  - Product dose omission [None]
  - Condition aggravated [None]

NARRATIVE: CASE EVENT DATE: 20191205
